FAERS Safety Report 17765327 (Version 1)
Quarter: 2020Q2

REPORT INFORMATION
  Report Type: Spontaneous
  Country: US (occurrence: US)
  Receive Date: 20200511
  Receipt Date: 20200511
  Transmission Date: 20200714
  Serious: Yes (Hospitalization)
  Sender: FDA-Public Use
  Company Number: US-PFIZER INC-2020186270

PATIENT
  Age: 19 Year
  Sex: Female

DRUGS (2)
  1. PLAQUENIL [Concomitant]
     Active Substance: HYDROXYCHLOROQUINE SULFATE
  2. XELJANZ [Suspect]
     Active Substance: TOFACITINIB CITRATE
     Dosage: 5 MG, 2X/DAY

REACTIONS (3)
  - Fatigue [Unknown]
  - Abdominal pain [Unknown]
  - Nausea [Unknown]

NARRATIVE: CASE EVENT DATE: 202001
